FAERS Safety Report 4337511-3 (Version None)
Quarter: 2004Q2

REPORT INFORMATION
  Report Type: 
  Country: None (occurrence: None)
  Receive Date: 20040413
  Receipt Date: 20040121
  Transmission Date: 20050107
  Serious: Yes (Hospitalization)
  Sender: FDA-Public Use
  Company Number: US-GLAXOSMITHKLINE-A0494487A

PATIENT
  Age: 43 Year
  Sex: Female
  Weight: 101.4 kg

DRUGS (8)
  1. AVANDIA [Suspect]
     Indication: DIABETES MELLITUS NON-INSULIN-DEPENDENT
     Dosage: 1TAB PER DAY
     Route: 048
     Dates: start: 20020401, end: 20020501
  2. PREMARIN [Concomitant]
     Dosage: .625MG PER DAY
     Route: 048
  3. LIPITOR [Concomitant]
     Dates: start: 20021101
  4. VICODIN [Concomitant]
     Route: 048
  5. COLACE [Concomitant]
  6. SENNA [Concomitant]
  7. REMERON [Concomitant]
     Dosage: .5TAB AT NIGHT
     Route: 048
  8. EFFEXOR XR [Concomitant]
     Dosage: 75MG THREE TIMES PER DAY
     Route: 048

REACTIONS (3)
  - BALANCE DISORDER [None]
  - GASTROOESOPHAGEAL REFLUX DISEASE [None]
  - HEADACHE [None]
